FAERS Safety Report 14155004 (Version 1)
Quarter: 2017Q4

REPORT INFORMATION
  Report Type: Spontaneous
  Country: US (occurrence: None)
  Receive Date: 20171102
  Receipt Date: 20171102
  Transmission Date: 20180321
  Serious: No
  Sender: FDA-Public Use
  Company Number: None

PATIENT
  Age: 19 Year
  Sex: Female
  Weight: 64.41 kg

DRUGS (3)
  1. VITAMIN C [Concomitant]
     Active Substance: ASCORBIC ACID
  2. NEXPLANON [Suspect]
     Active Substance: ETONOGESTREL
     Dates: start: 20170603
  3. WOMEN^S MULTIVITAMIN [Concomitant]

REACTIONS (5)
  - Anaphylactic reaction [None]
  - Metrorrhagia [None]
  - Pruritus [None]
  - Respiratory disorder [None]
  - Autoimmune dermatitis [None]
